FAERS Safety Report 4322361-4 (Version None)
Quarter: 2004Q1

REPORT INFORMATION
  Report Type: 
  Country: None (occurrence: None)
  Receive Date: 20040319
  Receipt Date: 20040219
  Transmission Date: 20041129
  Serious: Yes (Other)
  Sender: FDA-Public Use
  Company Number: 30018806-R04A132-1

PATIENT
  Age: 53 Year
  Sex: Female
  Weight: 73 kg

DRUGS (1)
  1. BBB4996 - DIANAL PD-2, 1.5%, TWIN-BAG [Suspect]
     Indication: PERITONEAL DIALYSIS
     Dosage: PD-2, 1.5% SOLUTION, INTRAPERITONEAL
     Route: 033
     Dates: start: 20000101

REACTIONS (6)
  - ABDOMINAL PAIN [None]
  - HYPOTENSION [None]
  - INFUSION SITE PAIN [None]
  - OEDEMA [None]
  - PHARMACEUTICAL PRODUCT COMPLAINT [None]
  - VOMITING [None]
